FAERS Safety Report 10973692 (Version 2)
Quarter: 2015Q2

REPORT INFORMATION
  Report Type: Spontaneous
  Country: US (occurrence: US)
  Receive Date: 20150401
  Receipt Date: 20150508
  Transmission Date: 20150821
  Serious: Yes (Hospitalization)
  Sender: FDA-Public Use
  Company Number: US-009507513-1503USA011826

PATIENT
  Sex: Female

DRUGS (4)
  1. AMITRIPTYLINE HYDROCHLORIDE. [Suspect]
     Active Substance: AMITRIPTYLINE HYDROCHLORIDE
     Dosage: UNK UNK, HS
     Route: 048
  2. METFORMIN [Concomitant]
     Active Substance: METFORMIN HYDROCHLORIDE
     Dosage: UNK
     Dates: start: 2005
  3. MENTHOLATUM/00543601 [Concomitant]
     Dosage: UNK
     Dates: start: 2014
  4. LYRICA [Suspect]
     Active Substance: PREGABALIN
     Dosage: 50 MG, 3 A DAY
     Dates: start: 2014

REACTIONS (8)
  - Drug ineffective [Recovered/Resolved]
  - Pain in extremity [Not Recovered/Not Resolved]
  - Burning sensation [Not Recovered/Not Resolved]
  - Fall [Recovered/Resolved]
  - Thrombosis [Recovered/Resolved]
  - Dizziness [Recovered/Resolved]
  - Insomnia [Recovered/Resolved]
  - Joint injury [Recovered/Resolved]

NARRATIVE: CASE EVENT DATE: 2005
